FAERS Safety Report 15608213 (Version 1)
Quarter: 2018Q4

REPORT INFORMATION
  Report Type: Spontaneous
  Country: US (occurrence: US)
  Receive Date: 20181112
  Receipt Date: 20181112
  Transmission Date: 20190205
  Serious: No
  Sender: FDA-Public Use
  Company Number: US-NEXGEN PHARMA, INC.-2058735

PATIENT
  Sex: Female

DRUGS (1)
  1. CHENODIOL TABLETS [Suspect]
     Active Substance: CHENODIOL
     Route: 048

REACTIONS (1)
  - Exposure during pregnancy [Unknown]
